FAERS Safety Report 4623450-7 (Version None)
Quarter: 2005Q1

REPORT INFORMATION
  Report Type: 
  Country: None (occurrence: None)
  Receive Date: 20050330
  Receipt Date: 20050328
  Transmission Date: 20050727
  Serious: Yes (Life-Threatening, Hospitalization, Disabling)
  Sender: FDA-Public Use
  Company Number: US-MERCK-0503USA04873

PATIENT
  Age: 84 Year
  Sex: Female

DRUGS (4)
  1. PREDNISONE [Suspect]
     Route: 065
  2. AGGRENOX [Suspect]
     Route: 065
  3. TYLENOL W/ CODEINE NO. 3 [Suspect]
     Route: 065
  4. FOSAMAX [Suspect]
     Indication: SPINAL COLUMN STENOSIS
     Route: 048
     Dates: start: 20040326, end: 20040326

REACTIONS (9)
  - ASTHENIA [None]
  - BACK PAIN [None]
  - CHEST PAIN [None]
  - CIRCULATORY COLLAPSE [None]
  - NAUSEA [None]
  - PHARYNGOLARYNGEAL PAIN [None]
  - SOMNOLENCE [None]
  - SYNCOPE [None]
  - WEIGHT DECREASED [None]
